FAERS Safety Report 17635467 (Version 2)
Quarter: 2021Q3

REPORT INFORMATION
  Report Type: Report from Study
  Country: US (occurrence: US)
  Receive Date: 20200406
  Receipt Date: 20210908
  Transmission Date: 20211014
  Serious: Yes (Other)
  Sender: FDA-Public Use
  Company Number: US-JAZZ-JPI-P-027213

PATIENT
  Age: 38 Year
  Sex: Female

DRUGS (2)
  1. DEXTROAMPHETAMINE [DEXAMFETAMINE] [Concomitant]
     Active Substance: DEXTROAMPHETAMINE
     Indication: NARCOLEPSY
  2. XYREM [Suspect]
     Active Substance: SODIUM OXYBATE
     Indication: NARCOLEPSY
     Dosage: UNKNOWN, QD
     Route: 048

REACTIONS (3)
  - Metabolic surgery [Unknown]
  - Sleep apnoea syndrome [Unknown]
  - Blood cholesterol increased [Recovered/Resolved]

NARRATIVE: CASE EVENT DATE: 20100902
